FAERS Safety Report 9177092 (Version 1)
Quarter: 2013Q1

REPORT INFORMATION
  Report Type: Spontaneous
  Country: IT (occurrence: None)
  Receive Date: 20130319
  Receipt Date: 20130319
  Transmission Date: 20140127
  Serious: Yes (Other)
  Sender: FDA-Public Use
  Company Number: GER/ITL/13/0028494

PATIENT
  Age: 24 Year
  Sex: Female
  Weight: 22.68 kg

DRUGS (2)
  1. RANITIDINE (RANITIDINE HYDROCHLORIDE) [Suspect]
     Indication: GASTRITIS
     Dosage: 150 MG, 1 TOTAL, ORAL
     Route: 048
     Dates: start: 20130119, end: 20130119
  2. BUSCOPAN (HYOSCINE BUTYLBROMIDE) [Concomitant]

REACTIONS (3)
  - Angioedema [None]
  - Urticaria [None]
  - Pruritus generalised [None]
